FAERS Safety Report 8153880-0 (Version None)
Quarter: 2012Q1

REPORT INFORMATION
  Report Type: 
  Country: None (occurrence: None)
  Receive Date: 20120221
  Receipt Date: 20120209
  Transmission Date: 20120608
  Serious: Yes (Hospitalization)
  Sender: FDA-Public Use
  Company Number: CA-ELI_LILLY_AND_COMPANY-CA201202003049

PATIENT
  Age: 69 Year
  Sex: Female

DRUGS (8)
  1. ATORVASTATIN [Concomitant]
  2. LOPRESSOR [Concomitant]
  3. TIAZAC [Concomitant]
  4. UROMAX [Concomitant]
  5. DIAMICRON [Concomitant]
  6. FORTEO [Suspect]
     Indication: OSTEOPOROSIS
     Dosage: 20 UG, QD
     Route: 058
     Dates: start: 20110909, end: 20120201
  7. PREDNISONE [Concomitant]
  8. ASPIRIN [Concomitant]

REACTIONS (3)
  - DRUG DOSE OMISSION [None]
  - BLOOD CALCIUM INCREASED [None]
  - DEHYDRATION [None]
